FAERS Safety Report 10808635 (Version 1)
Quarter: 2015Q1

REPORT INFORMATION
  Report Type: Report from Study
  Country: US (occurrence: US)
  Receive Date: 20150217
  Receipt Date: 20150217
  Transmission Date: 20150721
  Serious: No
  Sender: FDA-Public Use
  Company Number: US-ABBVIE-14K-163-1267456-00

PATIENT
  Age: 48 Year
  Sex: Male

DRUGS (9)
  1. LANTUS [Concomitant]
     Active Substance: INSULIN GLARGINE
     Indication: BLOOD GLUCOSE INCREASED
     Dosage: TAKE 50 IN AM ONLY WHEN ON PREDNISONE
  2. LEXAPRO [Concomitant]
     Active Substance: ESCITALOPRAM OXALATE
     Indication: DEPRESSION
  3. HYCOMINE [Concomitant]
     Active Substance: HYDROCODONE BITARTRATE\PHENYLPROPANOLAMINE HYDROCHLORIDE
     Indication: MUSCLE SPASMS
  4. PREDNISONE. [Concomitant]
     Active Substance: PREDNISONE
     Indication: CROHN^S DISEASE
     Dosage: TAPERING DOSE
  5. HUMIRA [Suspect]
     Active Substance: ADALIMUMAB
     Indication: CROHN^S DISEASE
     Dates: start: 20140501, end: 20140530
  6. DICYCLOMINE [Concomitant]
     Active Substance: DICYCLOMINE HYDROCHLORIDE
     Indication: GASTROINTESTINAL DISORDER
  7. LISINOPRIL. [Concomitant]
     Active Substance: LISINOPRIL
     Indication: HYPERTENSION
  8. AMLODIPINE [Concomitant]
     Active Substance: AMLODIPINE BESYLATE
     Indication: BLOOD PRESSURE ABNORMAL
  9. TYLENOL WITH CODEINE [Concomitant]
     Active Substance: ACETAMINOPHEN\CODEINE PHOSPHATE
     Indication: PAIN

REACTIONS (1)
  - Crohn^s disease [Not Recovered/Not Resolved]

NARRATIVE: CASE EVENT DATE: 20140604
